FAERS Safety Report 18321662 (Version 1)
Quarter: 2020Q3

REPORT INFORMATION
  Report Type: Spontaneous
  Country: NL (occurrence: NL)
  Receive Date: 20200928
  Receipt Date: 20200928
  Transmission Date: 20201103
  Serious: Yes (Other)
  Sender: FDA-Public Use
  Company Number: NL-TEVA-2020-NL-1830683

PATIENT
  Sex: Female
  Weight: 85 kg

DRUGS (2)
  1. LEVOTHYROXINE CAPSULE 112UG / BRAND NAME NOT SPECIFIED [Concomitant]
     Dosage: THERAPY START AND END DATES: ASKED BUT UNKNOWN
  2. PREDNISON TABLET 30MG / BRAND NAME NOT SPECIFIED [Suspect]
     Active Substance: PREDNISONE
     Indication: SUDDEN HEARING LOSS
     Dosage: 30 MILLIGRAM DAILY; THERAPY END DATE: ASKED BUT UNKNOWN
     Dates: start: 20200730

REACTIONS (1)
  - Vitreous detachment [Recovered/Resolved]
